FAERS Safety Report 25483412 (Version 1)
Quarter: 2025Q2

REPORT INFORMATION
  Report Type: Report from Study
  Country: US (occurrence: US)
  Receive Date: 20250626
  Receipt Date: 20250626
  Transmission Date: 20250716
  Serious: Yes (Death, Other)
  Sender: UCB
  Company Number: US-UCBSA-2025037124

PATIENT

DRUGS (4)
  1. LEVETIRACETAM [Suspect]
     Active Substance: LEVETIRACETAM
     Indication: Status epilepticus
  2. LEVETIRACETAM [Suspect]
     Active Substance: LEVETIRACETAM
     Indication: Partial seizures
  3. LEVETIRACETAM [Suspect]
     Active Substance: LEVETIRACETAM
     Indication: Epilepsy
  4. LEVETIRACETAM [Suspect]
     Active Substance: LEVETIRACETAM
     Indication: Off label use

REACTIONS (6)
  - Death [Fatal]
  - Arrhythmia [Unknown]
  - Ventricular tachycardia [Unknown]
  - Ventricular fibrillation [Unknown]
  - Arrhythmia supraventricular [Unknown]
  - Off label use [Unknown]
